FAERS Safety Report 8167679-2 (Version None)
Quarter: 2012Q1

REPORT INFORMATION
  Report Type: 
  Country: None (occurrence: None)
  Receive Date: 20120221
  Receipt Date: 20120206
  Transmission Date: 20120608
  Serious: Yes (Hospitalization, Other)
  Sender: FDA-Public Use
  Company Number: CIP11000537

PATIENT
  Age: 76 Year
  Sex: Female

DRUGS (34)
  1. FOSAMAX [Suspect]
     Indication: OSTEOPOROSIS
     Dosage: 70 MG WEEKLY, ORAL
     Route: 048
     Dates: start: 20010219, end: 20020423
  2. ACTONEL [Suspect]
     Indication: OSTEOPOROSIS
     Dosage: 35 MG WEEKLY, ORAL
     Route: 048
     Dates: start: 20020930, end: 20060321
  3. MIACALCIN [Suspect]
  4. ALBUTEROL [Concomitant]
  5. POTASSIOUM CHLORIDE (POTASSIUM CHLORIDE) [Concomitant]
  6. THEOPHYLLINE [Concomitant]
  7. METHOCARBAMOL [Concomitant]
  8. SINGULAIR [Concomitant]
  9. CHEMOTHERAPEUTICS NOS [Concomitant]
  10. PREMPHASE (ESTROGENS CONJUGARTED, MEDROXYPROGESTERONE ACETATE) [Concomitant]
  11. FLONASE [Concomitant]
  12. CALCIUM CARBONATE [Concomitant]
  13. FOSAMAX [Suspect]
     Indication: OSTEOPOROSIS
     Dosage: 10 MG DAILY, ORAL
     Route: 048
     Dates: start: 19960304, end: 20000901
  14. ACTONEL [Suspect]
     Indication: OSTEOPOROSIS
     Dosage: 10 MG TWICE DAILY, ORAL
     Route: 048
  15. LEVAQUIN [Concomitant]
  16. ATROVENT (IMPRATROPIUM BROMIDE) [Concomitant]
  17. INDAPAMIDE [Concomitant]
  18. ADVAIR HFA [Concomitant]
  19. PREDNISONE TAB [Concomitant]
  20. MYCELEX [Concomitant]
  21. NEURONTIN [Concomitant]
  22. NIFEDIPINE [Concomitant]
  23. CELEBREX [Concomitant]
  24. CALCITONIN (CALCITONIN) [Concomitant]
  25. ACTONEL [Suspect]
     Indication: OSTEOPOROSIS
     Dosage: 5 MG DAILY, ORAL
     Route: 048
     Dates: start: 20000901, end: 20110219
  26. BUSPIRONE HCL [Concomitant]
  27. QUININE SULFATE [Concomitant]
  28. NITROGLYCERIN (GLUCERYL TRINITRATE) [Concomitant]
  29. LOPRESSOR HCT (HYDROCHLOROTHIAZIDE, METOPROLOL TARTRATE) [Concomitant]
  30. AVELOX [Concomitant]
  31. ALLEGRA [Concomitant]
  32. TYLENOL WITH CODEIN #4 (CODEINE PHOPSHATE, PARACETAMOL) [Concomitant]
  33. ZANTAC [Concomitant]
  34. ACYCLOVIR [Concomitant]

REACTIONS (27)
  - STRESS FRACTURE [None]
  - ARTHRALGIA [None]
  - PAIN IN EXTREMITY [None]
  - ABDOMINAL DISCOMFORT [None]
  - OSTEONECROSIS [None]
  - CELLULITIS [None]
  - BACTERAEMIA [None]
  - FRACTURE NONUNION [None]
  - WOUND INFECTION [None]
  - TREATMENT NONCOMPLIANCE [None]
  - BONE GRAFT [None]
  - MEDICAL DEVICE COMPLICATION [None]
  - FEMUR FRACTURE [None]
  - MASS [None]
  - DEVICE BREAKAGE [None]
  - PROCEDURAL PAIN [None]
  - GROIN PAIN [None]
  - JOINT DISLOCATION [None]
  - HIP DEFORMITY [None]
  - OSTEOMYELITIS CHRONIC [None]
  - DEVICE FAILURE [None]
  - BONE DISORDER [None]
  - INCORRECT DOSE ADMINISTERED [None]
  - WOUND HAEMATOMA [None]
  - PELVIC PAIN [None]
  - DEVICE DISLOCATION [None]
  - ECONOMIC PROBLEM [None]
